FAERS Safety Report 8020088-9 (Version None)
Quarter: 2012Q1

REPORT INFORMATION
  Report Type: 
  Country: None (occurrence: None)
  Receive Date: 20120103
  Receipt Date: 20111229
  Transmission Date: 20120608
  Serious: Yes (Other)
  Sender: FDA-Public Use
  Company Number: PHHY2011FR111104

PATIENT
  Sex: Male
  Weight: 75 kg

DRUGS (2)
  1. ONBREZ [Suspect]
     Indication: CHRONIC OBSTRUCTIVE PULMONARY DISEASE
     Dosage: 150 UG, DAILY
     Dates: start: 20111130, end: 20111210
  2. FLECAINIDE ACETATE [Concomitant]

REACTIONS (1)
  - TACHYARRHYTHMIA [None]
